FAERS Safety Report 20900652 (Version 1)
Quarter: 2022Q2

REPORT INFORMATION
  Report Type: Spontaneous
  Country: US (occurrence: US)
  Receive Date: 20220601
  Receipt Date: 20220601
  Transmission Date: 20220720
  Serious: No
  Sender: FDA-Public Use
  Company Number: US-GLAXOSMITHKLINE-US2022AMR084517

PATIENT
  Sex: Female

DRUGS (3)
  1. NARATRIPTAN [Interacting]
     Active Substance: NARATRIPTAN HYDROCHLORIDE
     Indication: Migraine
     Dosage: 2.5 MG, QD
  2. TYRVAYA [Interacting]
     Active Substance: VARENICLINE TARTRATE
     Indication: Product used for unknown indication
     Dosage: UNK
  3. RELPAX [Interacting]
     Active Substance: ELETRIPTAN HYDROBROMIDE
     Indication: Product used for unknown indication
     Dosage: UNK

REACTIONS (4)
  - Drug interaction [Unknown]
  - Labelled drug-drug interaction medication error [Unknown]
  - Drug ineffective [Unknown]
  - Treatment noncompliance [Unknown]
